FAERS Safety Report 5825538-1 (Version None)
Quarter: 2008Q3

REPORT INFORMATION
  Report Type: 
  Country: None (occurrence: None)
  Receive Date: 20080725
  Receipt Date: 20080725
  Transmission Date: 20090109
  Serious: No
  Sender: FDA-Public Use
  Company Number: None

PATIENT
  Age: 70 Year
  Sex: Male
  Weight: 74.8435 kg

DRUGS (1)
  1. BENZONATATE 100MG PROVI [Suspect]
     Indication: PRODUCTIVE COUGH
     Dosage: ONE CAPSULE 3 TIMES A DAY PO
     Route: 048
     Dates: start: 20080722, end: 20080723

REACTIONS (2)
  - PRURITUS GENERALISED [None]
  - RASH GENERALISED [None]
